FAERS Safety Report 11340226 (Version 2)
Quarter: 2015Q4

REPORT INFORMATION
  Report Type: Spontaneous
  Country: US (occurrence: US)
  Receive Date: 20150805
  Receipt Date: 20151016
  Transmission Date: 20160304
  Serious: No
  Sender: FDA-Public Use
  Company Number: US-LEO PHARMA-236066

PATIENT
  Age: 68 Year
  Sex: Female

DRUGS (1)
  1. PICATO [Suspect]
     Active Substance: INGENOL MEBUTATE
     Indication: ACTINIC KERATOSIS
     Route: 061
     Dates: start: 20150730, end: 20150730

REACTIONS (4)
  - Erythema [Recovered/Resolved]
  - Application site vesicles [Recovered/Resolved]
  - Incorrect drug administration duration [Unknown]
  - Application site erythema [Recovered/Resolved]
